FAERS Safety Report 19436583 (Version 1)
Quarter: 2021Q2

REPORT INFORMATION
  Report Type: Report from Study
  Country: US (occurrence: US)
  Receive Date: 20210618
  Receipt Date: 20210618
  Transmission Date: 20210717
  Serious: Yes (Death, Hospitalization, Other)
  Sender: FDA-Public Use
  Company Number: US-GILEAD-2021-0532547

PATIENT
  Age: 73 Year
  Sex: Female

DRUGS (3)
  1. ALYQ [Suspect]
     Active Substance: TADALAFIL
     Indication: PRODUCT USED FOR UNKNOWN INDICATION
     Route: 065
  2. AMBRISENTAN [Suspect]
     Active Substance: AMBRISENTAN
     Indication: PULMONARY ARTERIAL HYPERTENSION
     Dosage: 5 MG, QD
     Route: 065
  3. DILTIAZEM. [Concomitant]
     Active Substance: DILTIAZEM

REACTIONS (5)
  - Fluid retention [Unknown]
  - Product dose omission issue [Unknown]
  - Cardiac disorder [Unknown]
  - Lung disorder [Unknown]
  - Cardiac failure congestive [Fatal]
